FAERS Safety Report 6774115-7 (Version None)
Quarter: 2010Q2

REPORT INFORMATION
  Report Type: 
  Country: None (occurrence: None)
  Receive Date: 20100617
  Receipt Date: 20100609
  Transmission Date: 20101027
  Serious: Yes (Other)
  Sender: FDA-Public Use
  Company Number: GR-ABBOTT-10P-066-0648422-00

PATIENT
  Age: 57 Year
  Sex: Male
  Weight: 90 kg

DRUGS (2)
  1. KLARICID [Suspect]
     Indication: PNEUMONIA
     Route: 048
     Dates: start: 20100310, end: 20100312
  2. AUGMENTIN '125' [Concomitant]
     Indication: PNEUMONIA

REACTIONS (6)
  - APHASIA [None]
  - DELIRIUM [None]
  - ILLUSION [None]
  - INSOMNIA [None]
  - PANIC REACTION [None]
  - PERSONALITY DISORDER [None]
